FAERS Safety Report 6221204-1 (Version None)
Quarter: 2009Q2

REPORT INFORMATION
  Report Type: 
  Country: None (occurrence: None)
  Receive Date: 20090610
  Receipt Date: 20090527
  Transmission Date: 20091009
  Serious: Yes (Life-Threatening, Hospitalization)
  Sender: FDA-Public Use
  Company Number: NL-ELI_LILLY_AND_COMPANY-NL200905005272

PATIENT
  Sex: Male
  Weight: 62 kg

DRUGS (5)
  1. ZYPREXA [Suspect]
     Indication: BIPOLAR DISORDER
     Dosage: 5 MG, DAILY (1/D)
     Dates: start: 20080101, end: 20090430
  2. PARNATE [Concomitant]
     Indication: BIPOLAR DISORDER
     Dosage: 10 MG, UNK
     Dates: start: 20090429, end: 20090501
  3. RIVOTRIL [Concomitant]
     Indication: RESTLESSNESS
     Dosage: 0.5 MG, 2/D
     Dates: start: 20090417, end: 20090501
  4. PRIADEL [Concomitant]
     Indication: BIPOLAR DISORDER
     Dosage: 400 MG, 2/D
     Dates: start: 19800101, end: 20090430
  5. NORTRIPTYLINE HCL [Concomitant]
     Dosage: 10 MG, UNK
     Dates: end: 20090401

REACTIONS (1)
  - SEROTONIN SYNDROME [None]
